FAERS Safety Report 6527114-4 (Version None)
Quarter: 2010Q1

REPORT INFORMATION
  Report Type: 
  Country: None (occurrence: None)
  Receive Date: 20100104
  Receipt Date: 20100104
  Transmission Date: 20100710
  Serious: No
  Sender: FDA-Public Use
  Company Number: None

PATIENT
  Age: 5 Year
  Sex: Female
  Weight: 16.7831 kg

DRUGS (1)
  1. FLOVENT [Suspect]
     Indication: ASTHMA
     Dosage: 2 PUFFS ONCE OR TWICE DAIL INHAL
     Route: 055
     Dates: start: 20091001, end: 20091231

REACTIONS (2)
  - INSOMNIA [None]
  - SLEEP TERROR [None]
